FAERS Safety Report 7948652-3 (Version None)
Quarter: 2011Q4

REPORT INFORMATION
  Report Type: 
  Country: None (occurrence: None)
  Receive Date: 20111130
  Receipt Date: 20111130
  Transmission Date: 20120403
  Serious: No
  Sender: FDA-Public Use
  Company Number: None

PATIENT
  Age: 34 Year
  Sex: Female
  Weight: 120 kg

DRUGS (4)
  1. VANCOMYCIN [Suspect]
     Indication: PNEUMONIA
     Dosage: 1 G, 1.5 G, 2 G, 2.5 G
     Route: 042
     Dates: start: 20110309, end: 20110319
  2. ZOSYN [Concomitant]
  3. BACTRIM [Concomitant]
  4. AMBISOME [Concomitant]

REACTIONS (1)
  - NEPHROPATHY TOXIC [None]
